FAERS Safety Report 5009867-X (Version None)
Quarter: 2006Q2

REPORT INFORMATION
  Report Type: 
  Country: None (occurrence: None)
  Receive Date: 20060524
  Receipt Date: 20060517
  Transmission Date: 20061013
  Serious: Yes (Other)
  Sender: FDA-Public Use
  Company Number: PHBS2006IE07270

PATIENT
  Sex: Female

DRUGS (1)
  1. ZOMETA [Suspect]
     Indication: BREAST CANCER
     Dosage: 4 MG, UNK
     Route: 042

REACTIONS (3)
  - ABSCESS JAW [None]
  - INFECTION [None]
  - INFLAMMATION [None]
